FAERS Safety Report 8017099-6 (Version None)
Quarter: 2012Q1

REPORT INFORMATION
  Report Type: 
  Country: None (occurrence: None)
  Receive Date: 20120102
  Receipt Date: 20111229
  Transmission Date: 20120608
  Serious: Yes (Other)
  Sender: FDA-Public Use
  Company Number: JP-ROCHE-1023740

PATIENT
  Age: 82 Year
  Sex: Male

DRUGS (2)
  1. TRIAMCINOLONE [Concomitant]
  2. RANIBIZUMAB [Suspect]
     Indication: AGE-RELATED MACULAR DEGENERATION
     Route: 050
     Dates: start: 20090619

REACTIONS (1)
  - RETINAL HAEMORRHAGE [None]
